FAERS Safety Report 6214696-5 (Version None)
Quarter: 2009Q2

REPORT INFORMATION
  Report Type: 
  Country: None (occurrence: None)
  Receive Date: 20090604
  Receipt Date: 20090523
  Transmission Date: 20091009
  Serious: Yes (Other)
  Sender: FDA-Public Use
  Company Number: US-PFIZER INC-2009195572

PATIENT
  Sex: Female
  Weight: 68.038 kg

DRUGS (8)
  1. ESTRING [Suspect]
     Indication: ATROPHIC VULVOVAGINITIS
     Dates: start: 20020101, end: 20080601
  2. TAMOXIFEN CITRATE [Suspect]
  3. EVISTA [Suspect]
     Dates: end: 20040101
  4. ATACAND [Concomitant]
  5. NORVASC [Concomitant]
  6. METOPROLOL [Concomitant]
  7. FISH OIL [Concomitant]
  8. VITAMINS [Concomitant]

REACTIONS (1)
  - PULMONARY EMBOLISM [None]
